FAERS Safety Report 17020837 (Version 3)
Quarter: 2019Q4

REPORT INFORMATION
  Report Type: Spontaneous
  Country: CN (occurrence: CN)
  Receive Date: 20191112
  Receipt Date: 20191126
  Transmission Date: 20200122
  Serious: Yes (Other)
  Sender: FDA-Public Use
  Company Number: CN-ASTRAZENECA-2019SF59688

PATIENT
  Age: 64 Year
  Sex: Female
  Weight: 52 kg

DRUGS (3)
  1. TRADITIONAL CHINESE MEDICINE [Concomitant]
     Active Substance: HERBALS\HOMEOPATHICS
     Dosage: ONCE A DAY
     Dates: start: 2017
  2. IRESSA [Suspect]
     Active Substance: GEFITINIB
     Indication: NON-SMALL CELL LUNG CANCER
     Route: 048
     Dates: start: 2017
  3. HERBS [Concomitant]
     Active Substance: HERBALS
     Dosage: ONCE A DAY
     Dates: start: 2017

REACTIONS (7)
  - Haematemesis [Unknown]
  - Drug resistance [Unknown]
  - Metastases to bone [Unknown]
  - Purulent discharge [Unknown]
  - Mucosal inflammation [Unknown]
  - Malignant neoplasm progression [Unknown]
  - Skin injury [Unknown]

NARRATIVE: CASE EVENT DATE: 201905
